FAERS Safety Report 5171215-2 (Version None)
Quarter: 2006Q4

REPORT INFORMATION
  Report Type: 
  Country: None (occurrence: None)
  Receive Date: 20061213
  Receipt Date: 20060127
  Transmission Date: 20070319
  Serious: Yes (Hospitalization)
  Sender: FDA-Public Use
  Company Number: US-AMGEN-STX166666

PATIENT
  Age: 36 Year
  Sex: Male

DRUGS (2)
  1. ENBREL [Suspect]
     Indication: PSORIASIS
     Dates: start: 20051001, end: 20051201
  2. LIDEX [Concomitant]
     Route: 061

REACTIONS (1)
  - PANCREATITIS [None]
